FAERS Safety Report 7014133-7 (Version None)
Quarter: 2010Q3

REPORT INFORMATION
  Report Type: 
  Country: None (occurrence: None)
  Receive Date: 20100927
  Receipt Date: 20100920
  Transmission Date: 20110219
  Serious: Yes (Hospitalization)
  Sender: FDA-Public Use
  Company Number: PHHY2010US63187

PATIENT
  Age: 3 Year
  Sex: Male

DRUGS (2)
  1. TOBI [Suspect]
     Dosage: 300 MG BID EVERY OTHER MONTH
     Dates: start: 20100505
  2. CEFTAZIDIME [Concomitant]
     Dosage: TID
     Route: 042

REACTIONS (1)
  - BRONCHITIS [None]
